FAERS Safety Report 25515056 (Version 1)
Quarter: 2025Q3

REPORT INFORMATION
  Report Type: Spontaneous
  Country: US (occurrence: US)
  Receive Date: 20250703
  Receipt Date: 20250703
  Transmission Date: 20251021
  Serious: Yes (Other)
  Sender: APOTEX
  Company Number: US-APOTEX-2025AP008873

PATIENT
  Age: 27 Year
  Sex: Male

DRUGS (3)
  1. RISPERIDONE [Suspect]
     Active Substance: RISPERIDONE
     Indication: Psychotic disorder
     Dosage: 1 MILLIGRAM, BID
     Route: 048
  2. RISPERIDONE [Suspect]
     Active Substance: RISPERIDONE
     Indication: Anxiety
  3. RISPERIDONE [Suspect]
     Active Substance: RISPERIDONE
     Indication: Sleep disorder

REACTIONS (3)
  - Angioedema [Recovered/Resolved]
  - Overdose [Unknown]
  - Fatigue [Unknown]
